FAERS Safety Report 9070809 (Version 1)
Quarter: 2013Q1

REPORT INFORMATION
  Report Type: Spontaneous
  Country: US (occurrence: US)
  Receive Date: 20130206
  Receipt Date: 20130206
  Transmission Date: 20140127
  Serious: No
  Sender: FDA-Public Use
  Company Number: US-ALLERGAN-1205708US

PATIENT
  Sex: Male
  Weight: 57.14 kg

DRUGS (18)
  1. RESTASIS? [Suspect]
     Indication: DRY EYE
     Dosage: 1 GTT, BID
     Route: 047
     Dates: start: 20120131
  2. REFRESH TEARS [Concomitant]
     Indication: POSTOPERATIVE CARE
     Dosage: UNK
     Route: 047
  3. REFRESH OPTIVE [Concomitant]
     Indication: DRY EYE
     Dosage: UNK
     Route: 047
  4. MURO 128 [Concomitant]
     Indication: POSTOPERATIVE CARE
     Dosage: 1 GTT, QAM
     Route: 047
  5. TIMOLOL GFX [Concomitant]
     Indication: GLAUCOMA
     Dosage: 1 GTT, QD
     Route: 047
     Dates: start: 2011
  6. XANAX [Concomitant]
     Indication: SLEEP DISORDER
     Dosage: 0.50 MG, QHS
     Route: 048
  7. TRAZODONE [Concomitant]
     Indication: SLEEP DISORDER
     Dosage: 75 MG, QHS
     Route: 048
  8. LOTEMAX [Concomitant]
     Indication: GLAUCOMA
     Dosage: 1 GTT, QD
     Route: 047
     Dates: start: 2007
  9. COSOPT [Concomitant]
     Indication: GLAUCOMA
     Dosage: 1 GTT, BID
     Route: 047
     Dates: start: 2006
  10. BLINK [Concomitant]
     Indication: POSTOPERATIVE CARE
     Route: 047
  11. LISINOPRIL [Concomitant]
     Indication: PRODUCT USED FOR UNKNOWN INDICATION
     Dosage: 40 MG IN AM; 20 MG IN PM
  12. NORVASC [Concomitant]
     Indication: PRODUCT USED FOR UNKNOWN INDICATION
     Dosage: UNK
  13. LIBRAX [Concomitant]
     Indication: PRODUCT USED FOR UNKNOWN INDICATION
  14. LEVOTHYROXINE [Concomitant]
     Indication: PRODUCT USED FOR UNKNOWN INDICATION
  15. VITAMIN D CALCIUM [Concomitant]
     Indication: PRODUCT USED FOR UNKNOWN INDICATION
  16. ALEVE [Concomitant]
     Indication: PRODUCT USED FOR UNKNOWN INDICATION
  17. LORATADINE [Concomitant]
     Indication: PRODUCT USED FOR UNKNOWN INDICATION
  18. REFRESH PLUS [Concomitant]
     Indication: DRY EYE

REACTIONS (8)
  - Eye disorder [Not Recovered/Not Resolved]
  - Vision blurred [Not Recovered/Not Resolved]
  - Vision blurred [Not Recovered/Not Resolved]
  - Dry eye [Not Recovered/Not Resolved]
  - Lacrimation increased [Not Recovered/Not Resolved]
  - Eye irritation [Not Recovered/Not Resolved]
  - Eye pain [Not Recovered/Not Resolved]
  - Therapeutic response decreased [Unknown]
